FAERS Safety Report 9142625 (Version 1)
Quarter: 2013Q1

REPORT INFORMATION
  Report Type: Spontaneous
  Country: FR (occurrence: FR)
  Receive Date: 20130306
  Receipt Date: 20130306
  Transmission Date: 20140127
  Serious: Yes (Hospitalization, Other)
  Sender: FDA-Public Use
  Company Number: FR-US-EMD SERONO, INC.-340004M08FRA

PATIENT
  Age: 39 Year
  Sex: Female

DRUGS (6)
  1. OVITRELLE [Suspect]
     Indication: IN VITRO FERTILISATION
     Route: 058
     Dates: start: 20080420, end: 20080420
  2. OVITRELLE [Suspect]
     Dates: start: 20080420, end: 20080420
  3. GONAL-F [Suspect]
     Indication: IN VITRO FERTILISATION
     Dates: start: 20080409, end: 20080419
  4. GONAL-F [Suspect]
     Route: 030
     Dates: start: 20080409, end: 20080419
  5. DECAPEPTYL [Suspect]
     Indication: IN VITRO FERTILISATION
     Dates: start: 20080326, end: 20080408
  6. DECAPEPTYL [Suspect]
     Dates: start: 20080409, end: 20080419

REACTIONS (2)
  - Face oedema [Recovered/Resolved]
  - Erythema [Recovered/Resolved]
